FAERS Safety Report 8602439 (Version 2)
Quarter: 2012Q4

REPORT INFORMATION
  Report Type: 
  Country: BR (occurrence: BR)
  Receive Date: 20120607
  Receipt Date: 20120921
  Transmission Date: 20130627
  Serious: Yes (Hospitalization, Other)
  Sender: FDA-Public Use
  Company Number: BR-SANOFI-AVENTIS-2012SA038288

PATIENT
  Age: 59 Year
  Sex: Male
  Weight: 90 kg

DRUGS (10)
  1. LANTUS [Suspect]
     Indication: TYPE 2 DIABETES MELLITUS
     Dosage: Form: Syringe
     Route: 058
     Dates: start: 2002
  2. ATENOLOL [Concomitant]
     Indication: BLOOD PRESSURE
     Dosage: strength: 50 mg
     Route: 048
  3. CORDAREX [Concomitant]
     Indication: BLOOD PRESSURE
     Route: 048
  4. FLUOXETINE [Concomitant]
     Indication: NERVOUS SYSTEM DISORDER NOS
     Route: 048
  5. HUMALOG [Concomitant]
     Indication: TYPE I DIABETES MELLITUS
     Dosage: dose: according to glycemia
     Route: 058
  6. LOSARTAN POTASSIUM [Concomitant]
     Indication: BLOOD PRESSURE
     Dosage: strength: 100 mg
     Route: 048
  7. WARFARIN [Concomitant]
     Indication: CARDIAC DISORDER NOS
     Route: 048
  8. SLOW-K [Concomitant]
     Indication: CARDIAC DISORDER NOS
     Route: 048
  9. ACETYLSALICYLIC ACID [Concomitant]
     Indication: CARDIAC DISORDER NOS
     Route: 048
  10. HUMULIN [Concomitant]

REACTIONS (9)
  - Infarction [Recovered/Resolved]
  - Arterial occlusive disease [Unknown]
  - Cerebrovascular accident [Unknown]
  - Paralysis [Recovering/Resolving]
  - Septic shock [Unknown]
  - Sepsis [Unknown]
  - Paralysis [Recovered/Resolved]
  - Nervous system disorder [Unknown]
  - Infection [Unknown]
